FAERS Safety Report 18600766 (Version 2)
Quarter: 2020Q4

REPORT INFORMATION
  Report Type: Spontaneous
  Country: US (occurrence: US)
  Receive Date: 20201210
  Receipt Date: 20201221
  Transmission Date: 20210114
  Serious: No
  Sender: FDA-Public Use
  Company Number: US-TEVA-2020-US-1857119

PATIENT

DRUGS (1)
  1. PIMECROLIMUS CREAM [Suspect]
     Active Substance: PIMECROLIMUS
     Indication: EYELIDS PRURITUS
     Dosage: 1% CREAM IN A 30 GRAM TUBE
     Route: 061
     Dates: start: 2020

REACTIONS (2)
  - Abnormal sensation in eye [Unknown]
  - Eye irritation [Unknown]

NARRATIVE: CASE EVENT DATE: 20201201
